FAERS Safety Report 12955742 (Version 2)
Quarter: 2016Q4

REPORT INFORMATION
  Report Type: Spontaneous
  Country: US (occurrence: US)
  Receive Date: 20161118
  Receipt Date: 20161215
  Transmission Date: 20170207
  Serious: Yes (Hospitalization, Other)
  Sender: FDA-Public Use
  Company Number: US-SAOL THERAPEUTICS-2016SAO00877

PATIENT
  Age: 19 Year
  Sex: Male
  Weight: 37.7 kg

DRUGS (7)
  1. LIORESAL [Suspect]
     Active Substance: BACLOFEN
     Indication: CEREBRAL PALSY
  2. LIORESAL [Suspect]
     Active Substance: BACLOFEN
     Indication: QUADRIPLEGIA
     Dosage: UNK
     Route: 037
     Dates: start: 201402
  3. TOPIRAMATE. [Concomitant]
     Active Substance: TOPIRAMATE
  4. ALBUTEROL. [Concomitant]
     Active Substance: ALBUTEROL
  5. PULMICORT TURBUHALER [Concomitant]
     Active Substance: BUDESONIDE
     Dosage: 0.5 MG, 2X/DAY
     Route: 055
  6. K-NA [Concomitant]
     Dosage: 1 DOSAGE UNITS, 1X/DAY
     Route: 048
  7. VALPROIC ACID. [Concomitant]
     Active Substance: VALPROIC ACID

REACTIONS (4)
  - Clostridium difficile infection [Unknown]
  - Medical device site infection [Unknown]
  - Lethargy [Recovered/Resolved]
  - Overdose [Recovered/Resolved]

NARRATIVE: CASE EVENT DATE: 20160930
